FAERS Safety Report 22848517 (Version 3)
Quarter: 2023Q4

REPORT INFORMATION
  Report Type: Spontaneous
  Country: RO (occurrence: RO)
  Receive Date: 20230822
  Receipt Date: 20231229
  Transmission Date: 20240109
  Serious: Yes (Other)
  Sender: FDA-Public Use
  Company Number: RO-SANDOZ-SDZ2023RO014968

PATIENT
  Age: 68 Year
  Sex: Male

DRUGS (6)
  1. SUNITINIB MALATE [Suspect]
     Active Substance: SUNITINIB MALATE
     Indication: Metastatic renal cell carcinoma
     Dosage: 37.5 MG, QD
     Route: 048
  2. SUNITINIB MALATE [Suspect]
     Active Substance: SUNITINIB MALATE
     Indication: Metastases to bone
     Dosage: 37.5 MG, Q4W
     Route: 048
  3. SUNITINIB MALATE [Suspect]
     Active Substance: SUNITINIB MALATE
     Dosage: 37.5 MG, Q4W
     Route: 048
  4. SUNITINIB MALATE [Suspect]
     Active Substance: SUNITINIB MALATE
     Dosage: 37.5 MG, CYCLIC (FOUR CONSECUTIVE WEEKS OF THERAPY FOLLOWED BY 2 WEEKS OF DISCONTINUATION)
     Route: 065
  5. ZOLEDRONIC ACID [Suspect]
     Active Substance: ZOLEDRONIC ACID
     Indication: Metastatic renal cell carcinoma
     Dosage: 4 MG (SINGLE DOSE)
     Route: 042
  6. ZOLEDRONIC ACID [Suspect]
     Active Substance: ZOLEDRONIC ACID
     Indication: Metastases to bone

REACTIONS (6)
  - Salivary gland fistula [Unknown]
  - Osteonecrosis of jaw [Not Recovered/Not Resolved]
  - Tooth avulsion [Not Recovered/Not Resolved]
  - Jaw fistula [Recovered/Resolved]
  - Jaw fistula [Not Recovered/Not Resolved]
  - Actinomycosis [Unknown]
